FAERS Safety Report 8508513-8 (Version None)
Quarter: 2012Q3

REPORT INFORMATION
  Report Type: 
  Country: None (occurrence: None)
  Receive Date: 20120713
  Receipt Date: 20120711
  Transmission Date: 20120928
  Serious: Yes (Death, Hospitalization, Other)
  Sender: FDA-Public Use
  Company Number: US-BAYER-2011-055566

PATIENT
  Age: 83 Year
  Sex: Male
  Weight: 78 kg

DRUGS (13)
  1. BISOPROLOL FUMARATE [Concomitant]
     Dosage: UNK
     Dates: end: 20110104
  2. ASPIRIN [Concomitant]
  3. HEPARIN [Suspect]
     Dosage: 0.01 MG/KG, UNK
     Route: 040
     Dates: start: 20101216, end: 20101216
  4. CLOPIDOGREL [Concomitant]
     Dosage: UNK
     Dates: start: 20101216, end: 20101216
  5. ACETYLCYSTEINE [Concomitant]
     Dosage: UNK
     Dates: start: 20101216, end: 20110101
  6. AMLODIPINE [Concomitant]
     Dosage: UNK
     Dates: end: 20101216
  7. ULTRAVIST 150 [Suspect]
     Indication: ANGIOGRAM
     Dosage: 222 ML, UNK
     Route: 042
     Dates: start: 20101216, end: 20101216
  8. VALSARTAN [Concomitant]
     Dosage: UNK
     Dates: end: 20110104
  9. SIMVASTATIN [Concomitant]
     Dosage: UNK
     Dates: start: 20101217, end: 20110104
  10. HEPARIN [Suspect]
     Indication: PERCUTANEOUS CORONARY INTERVENTION
     Dosage: 0.02 MG/KG, UNK
     Route: 040
     Dates: start: 20101216, end: 20101216
  11. HEPARIN [Suspect]
     Dosage: 64 IU/KG, UNK
     Route: 040
     Dates: start: 20101216, end: 20101216
  12. TIROFIBAN [Concomitant]
     Dosage: UNK
     Dates: start: 20101216, end: 20101216
  13. PANTOPRAZOLE [Concomitant]
     Dosage: UNK
     Dates: start: 20101217, end: 20110104

REACTIONS (4)
  - PNEUMONIA [None]
  - ASPHYXIA [None]
  - CARDIAC ARREST [None]
  - RENAL FAILURE ACUTE [None]
